FAERS Safety Report 16766769 (Version 5)
Quarter: 2023Q2

REPORT INFORMATION
  Report Type: Spontaneous
  Country: US (occurrence: US)
  Receive Date: 20190903
  Receipt Date: 20230426
  Transmission Date: 20230721
  Serious: Yes (Hospitalization, Other)
  Sender: FDA-Public Use
  Company Number: US-PFIZER INC-2019373177

PATIENT
  Age: 73 Year
  Sex: Male

DRUGS (3)
  1. XELJANZ [Suspect]
     Active Substance: TOFACITINIB CITRATE
     Dosage: 10 MG
  2. XELJANZ [Suspect]
     Active Substance: TOFACITINIB CITRATE
     Dosage: 5 MG
  3. XELJANZ [Suspect]
     Active Substance: TOFACITINIB CITRATE
     Dosage: 10 MG

REACTIONS (13)
  - Neoplasm malignant [Unknown]
  - Lung neoplasm malignant [Unknown]
  - Pneumonectomy [Unknown]
  - Lung operation [Unknown]
  - Tooth abscess [Unknown]
  - Cataract [Unknown]
  - Blindness [Unknown]
  - Rhinorrhoea [Unknown]
  - Sinus disorder [Unknown]
  - Therapeutic response unexpected [Unknown]
  - Emotional distress [Unknown]
  - Vision blurred [Recovered/Resolved]
  - Scar [Unknown]

NARRATIVE: CASE EVENT DATE: 20220101
